FAERS Safety Report 4967157-5 (Version None)
Quarter: 2006Q2

REPORT INFORMATION
  Report Type: 
  Country: None (occurrence: None)
  Receive Date: 20060404
  Receipt Date: 20060327
  Transmission Date: 20061013
  Serious: Yes (Hospitalization)
  Sender: FDA-Public Use
  Company Number: 222902

PATIENT
  Age: 50 Year
  Sex: Female

DRUGS (3)
  1. XOLAIR [Suspect]
     Dosage: 150 MG, UNK, SUBCUTANEOUS
     Route: 058
  2. ZAFIRLUKAST (ZAFIRLUKAST) [Concomitant]
  3. BECLOMETHASONE (BECLOMETHASONE DIPROPIONATE) [Concomitant]

REACTIONS (4)
  - ANAPHYLACTIC REACTION [None]
  - ANGIONEUROTIC OEDEMA [None]
  - CHEST DISCOMFORT [None]
  - FLUSHING [None]
